FAERS Safety Report 24322857 (Version 1)
Quarter: 2024Q3

REPORT INFORMATION
  Report Type: Spontaneous
  Country: JP (occurrence: JP)
  Receive Date: 20240916
  Receipt Date: 20240916
  Transmission Date: 20241017
  Serious: Yes (Other)
  Sender: AMGEN
  Company Number: JP-AMGEN-JPNSP2024110536

PATIENT

DRUGS (3)
  1. BLINCYTO [Suspect]
     Active Substance: BLINATUMOMAB
     Indication: Acute lymphocytic leukaemia refractory
     Dosage: 9 MICROGRAM, QD
     Route: 042
     Dates: start: 20240527, end: 20240529
  2. BLINCYTO [Suspect]
     Active Substance: BLINATUMOMAB
     Dosage: 5 MICROGRAM/SQ. METER, QD DOSE REDUCED
     Route: 042
     Dates: start: 20240607, end: 202406
  3. BLINCYTO [Suspect]
     Active Substance: BLINATUMOMAB
     Dosage: 9 MICROGRAM/SQ. METER, QD
     Route: 042
     Dates: start: 20240616, end: 2024

REACTIONS (5)
  - Depressed level of consciousness [Recovered/Resolved]
  - Acute lymphocytic leukaemia recurrent [Unknown]
  - Nervous system disorder [Recovered/Resolved]
  - Aphasia [Recovered/Resolved]
  - Off label use [Unknown]

NARRATIVE: CASE EVENT DATE: 20240529
